FAERS Safety Report 15928061 (Version 2)
Quarter: 2019Q1

REPORT INFORMATION
  Report Type: Report from Study
  Country: None (occurrence: US)
  Receive Date: 20190205
  Receipt Date: 20190209
  Transmission Date: 20190417
  Serious: Yes (Other)
  Sender: FDA-Public Use
  Company Number: US-ABBVIE-19S-163-2647734-00

PATIENT
  Age: 83 Year
  Sex: Male
  Weight: 81.72 kg

DRUGS (3)
  1. XTANDI [Concomitant]
     Active Substance: ENZALUTAMIDE
     Indication: PRODUCT USED FOR UNKNOWN INDICATION
  2. LUPRON [Suspect]
     Active Substance: LEUPROLIDE ACETATE
     Indication: PROSTATE CANCER
     Route: 030
     Dates: start: 20151210
  3. PROLIA [Concomitant]
     Active Substance: DENOSUMAB
     Indication: PRODUCT USED FOR UNKNOWN INDICATION

REACTIONS (4)
  - Bladder outlet obstruction [Recovered/Resolved]
  - Acquired phimosis [Recovered/Resolved]
  - Urinary incontinence [Unknown]
  - Urine flow decreased [Recovered/Resolved]

NARRATIVE: CASE EVENT DATE: 2016
